FAERS Safety Report 12334949 (Version 1)
Quarter: 2016Q2

REPORT INFORMATION
  Report Type: Spontaneous
  Country: JP (occurrence: JP)
  Receive Date: 20160504
  Receipt Date: 20160504
  Transmission Date: 20160815
  Serious: Yes (Other)
  Sender: FDA-Public Use
  Company Number: JP-TEVA-656868ISR

PATIENT
  Age: 57 Year
  Sex: Male

DRUGS (2)
  1. CISPLATIN. [Suspect]
     Active Substance: CISPLATIN
  2. PEMETREXED [Suspect]
     Active Substance: PEMETREXED

REACTIONS (3)
  - Hepatic function abnormal [Unknown]
  - Decreased appetite [Unknown]
  - Condition aggravated [Unknown]
